FAERS Safety Report 5919990-0 (Version None)
Quarter: 2008Q4

REPORT INFORMATION
  Report Type: 
  Country: None (occurrence: None)
  Receive Date: 20081014
  Receipt Date: 20080930
  Transmission Date: 20090506
  Serious: Yes (Other)
  Sender: FDA-Public Use
  Company Number: 2008S1017753

PATIENT
  Age: 78 Year
  Sex: Female
  Weight: 63.5036 kg

DRUGS (15)
  1. FENTANYL TRANSDERMAL SYSTEM [Suspect]
     Indication: PAIN
     Dosage: 100 UG;EVERY HOUR; TRANSDERMAL
     Route: 062
     Dates: start: 20050101
  2. CELEBREX [Concomitant]
  3. VICODIN [Concomitant]
  4. PREMPRO [Concomitant]
  5. DETROL /01350201/ [Concomitant]
  6. AMITRIPTYLINE /00002202/ [Concomitant]
  7. COZAAR [Concomitant]
  8. FUROSEMIDE [Concomitant]
  9. KLOR-CON [Concomitant]
  10. ALBUTEROL [Concomitant]
  11. FLOVENT [Concomitant]
  12. CENTRUM SILVER /02363801/ [Concomitant]
  13. STOOL SOFTENER [Concomitant]
  14. OSTEO BI-FLEX [Concomitant]
  15. CALCIUM [Concomitant]

REACTIONS (6)
  - DRUG EFFECT DECREASED [None]
  - FEELING HOT [None]
  - FEELING JITTERY [None]
  - MALAISE [None]
  - NAUSEA [None]
  - PRODUCT QUALITY ISSUE [None]
